FAERS Safety Report 24375872 (Version 3)
Quarter: 2024Q4

REPORT INFORMATION
  Report Type: Spontaneous
  Country: KR (occurrence: KR)
  Receive Date: 20240928
  Receipt Date: 20241101
  Transmission Date: 20250114
  Serious: Yes (Death, Other)
  Sender: UNITED THERAPEUTICS
  Company Number: KR-UNITED THERAPEUTICS-UNT-2024-030675

PATIENT
  Sex: Female
  Weight: 39 kg

DRUGS (2)
  1. REMODULIN [Suspect]
     Active Substance: TREPROSTINIL
     Indication: Pulmonary arterial hypertension
     Dosage: 0.046 ?G/KG, CONTINUING
  2. REMODULIN [Suspect]
     Active Substance: TREPROSTINIL
     Dosage: UNK, CONTINUING
     Dates: start: 20170915, end: 20240923

REACTIONS (1)
  - Pulmonary arterial hypertension [Fatal]
